FAERS Safety Report 18664486 (Version 1)
Quarter: 2020Q4

REPORT INFORMATION
  Report Type: Spontaneous
  Country: US (occurrence: US)
  Receive Date: 20201225
  Receipt Date: 20201225
  Transmission Date: 20210114
  Serious: No
  Sender: FDA-Public Use
  Company Number: US-GLAXOSMITHKLINE-US2020250109

PATIENT
  Age: 64 Year
  Sex: Female

DRUGS (1)
  1. VOLTAREN ARTHRITIS PAIN [Suspect]
     Active Substance: DICLOFENAC SODIUM
     Indication: ARTHRITIS
     Dosage: UNK
     Dates: start: 20201102, end: 20201210

REACTIONS (8)
  - Hypersensitivity [Unknown]
  - Headache [Unknown]
  - Pruritus [Unknown]
  - Herpes zoster [Unknown]
  - Application site reaction [Unknown]
  - Application site erythema [Unknown]
  - Inappropriate schedule of product administration [Unknown]
  - Skin swelling [Unknown]

NARRATIVE: CASE EVENT DATE: 20201209
